FAERS Safety Report 10186133 (Version 2)
Quarter: 2014Q2

REPORT INFORMATION
  Report Type: Spontaneous
  Country: JP (occurrence: JP)
  Receive Date: 20140521
  Receipt Date: 20140602
  Transmission Date: 20141212
  Serious: Yes (Other)
  Sender: FDA-Public Use
  Company Number: JP-PFIZER INC-2014137872

PATIENT
  Sex: 0

DRUGS (1)
  1. LYRICA [Suspect]
     Dosage: 150 MG, DAILY
     Route: 048
     Dates: start: 201403

REACTIONS (1)
  - Electrocardiogram QT prolonged [Recovered/Resolved]
